FAERS Safety Report 23423295 (Version 1)
Quarter: 2024Q1

REPORT INFORMATION
  Report Type: Spontaneous
  Country: CA (occurrence: CA)
  Receive Date: 20240119
  Receipt Date: 20240119
  Transmission Date: 20240410
  Serious: Yes (Death, Other)
  Sender: FDA-Public Use
  Company Number: CA-002147023-NVSC2024CA009055

PATIENT
  Age: 74 Year
  Sex: Female
  Weight: 50 kg

DRUGS (20)
  1. AMLODIPINE [Suspect]
     Active Substance: AMLODIPINE BESYLATE
     Indication: Blood pressure increased
     Dosage: UNK
     Route: 065
  2. CYCLOSPORINE [Suspect]
     Active Substance: CYCLOSPORINE
     Indication: Haemoglobin decreased
     Dosage: UNK
     Route: 065
  3. PREDNISONE [Suspect]
     Active Substance: PREDNISONE
     Indication: Product used for unknown indication
     Dosage: UNK
     Route: 065
  4. RITUXIMAB [Suspect]
     Active Substance: RITUXIMAB
     Dosage: 1000 MG (1 EVERY 15 DAYS)
     Route: 017
  5. RITUXIMAB [Suspect]
     Active Substance: RITUXIMAB
     Indication: Neuromyelitis optica spectrum disorder
     Dosage: 1000 MG (1 EVERY 6 MONTHS)
     Route: 017
  6. RITUXIMAB [Suspect]
     Active Substance: RITUXIMAB
     Dosage: 500 MG
     Route: 017
  7. RITUXIMAB [Suspect]
     Active Substance: RITUXIMAB
     Indication: Multiple sclerosis
     Dosage: 500 MG, Q3MO
     Route: 017
  8. RITUXIMAB [Suspect]
     Active Substance: RITUXIMAB
     Dosage: UNK
     Route: 065
  9. ACETAMINOPHEN [Concomitant]
     Active Substance: ACETAMINOPHEN
     Indication: Product used for unknown indication
     Dosage: 650 MG
     Route: 048
  10. BILBERRY [Concomitant]
     Active Substance: BILBERRY
     Indication: Product used for unknown indication
     Dosage: UNK
     Route: 065
  11. CALCIUM [Concomitant]
     Active Substance: CALCIUM
     Indication: Product used for unknown indication
     Dosage: UNK
     Route: 065
  12. DIPHENHYDRAMINE [Concomitant]
     Active Substance: DIPHENHYDRAMINE
     Indication: Premedication
     Dosage: 50 MG
     Route: 065
  13. MAGNESIUM [Concomitant]
     Active Substance: MAGNESIUM
     Indication: Product used for unknown indication
     Dosage: UNK
     Route: 065
  14. METHYLPREDNISOLONE [Concomitant]
     Active Substance: METHYLPREDNISOLONE
     Indication: Product used for unknown indication
     Dosage: 100 MG
     Route: 017
  15. OMEGA 3 [Concomitant]
     Active Substance: CAPSAICIN
     Indication: Product used for unknown indication
     Dosage: UNK
     Route: 065
  16. Oracort [Concomitant]
     Indication: Product used for unknown indication
     Dosage: UNK
     Route: 065
  17. RABEPRAZOLE [Concomitant]
     Active Substance: RABEPRAZOLE
     Indication: Product used for unknown indication
     Dosage: UNK
     Route: 065
  18. RANITIDINE [Concomitant]
     Active Substance: RANITIDINE
     Indication: Product used for unknown indication
     Dosage: 150 MG
     Route: 065
  19. SYNTHROID [Concomitant]
     Active Substance: LEVOTHYROXINE SODIUM
     Indication: Product used for unknown indication
     Dosage: UNK
     Route: 065
  20. TYLENOL [Concomitant]
     Active Substance: ACETAMINOPHEN
     Indication: Product used for unknown indication
     Dosage: UNK
     Route: 065

REACTIONS (35)
  - Abdominal pain upper [Fatal]
  - Abdominal distension [Fatal]
  - Aphthous ulcer [Fatal]
  - Balance disorder [Fatal]
  - Blood iron increased [Fatal]
  - Blood pressure fluctuation [Fatal]
  - Blood pressure increased [Fatal]
  - Blood pressure systolic abnormal [Fatal]
  - Blood pressure systolic increased [Fatal]
  - Chest pain [Fatal]
  - Constipation [Fatal]
  - Dyschromatopsia [Fatal]
  - Eastern Cooperative Oncology Group performance status abnormal [Fatal]
  - Eye pain [Fatal]
  - Fatigue [Fatal]
  - Haemoglobin decreased [Fatal]
  - Haemorrhoids [Fatal]
  - Headache [Fatal]
  - Heart rate increased [Fatal]
  - Joint swelling [Fatal]
  - Metamorphopsia [Fatal]
  - Migraine [Fatal]
  - Migraine with aura [Fatal]
  - Nerve compression [Fatal]
  - Optic neuritis [Fatal]
  - Pain [Fatal]
  - Pigmentation disorder [Fatal]
  - Polymers allergy [Fatal]
  - Pruritus [Fatal]
  - Rash [Fatal]
  - Skin mass [Fatal]
  - Vision blurred [Fatal]
  - Vulvovaginal pruritus [Fatal]
  - Weight increased [Fatal]
  - Off label use [Fatal]
